FAERS Safety Report 5125155-5 (Version None)
Quarter: 2006Q4

REPORT INFORMATION
  Report Type: 
  Country: None (occurrence: None)
  Receive Date: 20061011
  Receipt Date: 20061003
  Transmission Date: 20070319
  Serious: Yes (Other)
  Sender: FDA-Public Use
  Company Number: ES-SANOFI-SYNTHELABO-A01200608182

PATIENT
  Sex: Female

DRUGS (1)
  1. ELOXATIN [Suspect]
     Dosage: UNK
     Route: 042

REACTIONS (2)
  - HYPERSENSITIVITY [None]
  - RESPIRATORY ARREST [None]
